FAERS Safety Report 17021379 (Version 7)
Quarter: 2020Q4

REPORT INFORMATION
  Report Type: Spontaneous
  Country: US (occurrence: US)
  Receive Date: 20191112
  Receipt Date: 20201026
  Transmission Date: 20210113
  Serious: No
  Sender: FDA-Public Use
  Company Number: US-PFIZER INC-2019483591

PATIENT
  Age: 53 Year
  Sex: Female

DRUGS (2)
  1. LETROZOLE. [Suspect]
     Active Substance: LETROZOLE
     Dosage: UNK
  2. IBRANCE [Suspect]
     Active Substance: PALBOCICLIB
     Indication: BREAST CANCER METASTATIC
     Dosage: 75 MG

REACTIONS (5)
  - Gait inability [Recovering/Resolving]
  - Epigastric discomfort [Recovering/Resolving]
  - Malaise [Recovering/Resolving]
  - Neoplasm progression [Recovering/Resolving]
  - Cough [Recovering/Resolving]
